FAERS Safety Report 15084451 (Version 1)
Quarter: 2018Q2

REPORT INFORMATION
  Report Type: Spontaneous
  Country: US (occurrence: US)
  Receive Date: 20180628
  Receipt Date: 20180628
  Transmission Date: 20180711
  Serious: Yes (Hospitalization)
  Sender: FDA-Public Use
  Company Number: US-TEVA-2018-US-912544

PATIENT
  Sex: Female

DRUGS (3)
  1. LAMOTRIGINE. [Concomitant]
     Active Substance: LAMOTRIGINE
     Route: 065
  2. AMPHETAMINE W/DEXTROAMPHETAMINE [Suspect]
     Active Substance: AMPHETAMINE SULFATE\DEXTROAMPHETAMINE
     Indication: BIPOLAR DISORDER
     Route: 065
  3. LITHIUM. [Concomitant]
     Active Substance: LITHIUM
     Indication: EPILEPSY

REACTIONS (2)
  - Hip arthroplasty [Unknown]
  - Product use in unapproved indication [Unknown]
